FAERS Safety Report 5877072-0 (Version None)
Quarter: 2008Q3

REPORT INFORMATION
  Report Type: 
  Country: None (occurrence: None)
  Receive Date: 20080910
  Receipt Date: 20080903
  Transmission Date: 20090109
  Serious: Yes (Hospitalization)
  Sender: FDA-Public Use
  Company Number: PHEH2008US06810

PATIENT
  Sex: Female

DRUGS (3)
  1. TRILEPTAL [Suspect]
     Indication: CONVULSION
     Dosage: 300 MG, BID
     Route: 048
  2. VITAMIN TAB [Concomitant]
     Indication: PREGNANCY
     Dosage: ONE TABLET
     Route: 048
  3. FOLIC ACID [Concomitant]
     Indication: PREGNANCY
     Dosage: 1 MG, QD
     Route: 048

REACTIONS (6)
  - CAESAREAN SECTION [None]
  - DRUG EXPOSURE DURING PREGNANCY [None]
  - MUSCULOSKELETAL PAIN [None]
  - PREMATURE LABOUR [None]
  - PYREXIA [None]
  - WHITE BLOOD CELL COUNT INCREASED [None]
